FAERS Safety Report 5334027-2 (Version None)
Quarter: 2007Q2

REPORT INFORMATION
  Report Type: 
  Country: None (occurrence: None)
  Receive Date: 20070524
  Receipt Date: 20070518
  Transmission Date: 20071010
  Serious: Yes (Hospitalization)
  Sender: FDA-Public Use
  Company Number: US-ROXANE LABORATORIES, INC-2007-BP-06863RO

PATIENT
  Sex: Female

DRUGS (2)
  1. ROXICET [Suspect]
     Indication: BREAKTHROUGH PAIN
     Dosage: 1/2 TO 1 TABLET AS NEEDED
     Route: 048
     Dates: end: 20070425
  2. OXYCODONE HCL EXTENDED-RELEASE [Suspect]
     Indication: PAIN
     Route: 048
     Dates: start: 20070101, end: 20070423

REACTIONS (10)
  - CONSTIPATION [None]
  - DIZZINESS [None]
  - DRUG INEFFECTIVE [None]
  - DRUG WITHDRAWAL SYNDROME [None]
  - DRY MOUTH [None]
  - DYSGEUSIA [None]
  - FAECES DISCOLOURED [None]
  - GASTROINTESTINAL ULCER [None]
  - SOMNOLENCE [None]
  - WEIGHT DECREASED [None]
